FAERS Safety Report 24040043 (Version 1)
Quarter: 2024Q3

REPORT INFORMATION
  Report Type: Spontaneous
  Country: FR (occurrence: FR)
  Receive Date: 20240702
  Receipt Date: 20240702
  Transmission Date: 20241017
  Serious: Yes (Hospitalization)
  Sender: ACCORD
  Company Number: None

PATIENT
  Age: 58 Year
  Sex: Female
  Weight: 78 kg

DRUGS (2)
  1. MITOMYCIN [Suspect]
     Active Substance: MITOMYCIN
     Indication: Anal cancer
     Dosage: C1 21/09/2023
     Dates: start: 20230921, end: 202311
  2. FLUOROURACIL [Concomitant]
     Active Substance: FLUOROURACIL
     Indication: Anal cancer
     Dosage: C1 21/09/2023
     Dates: start: 20230921, end: 202311

REACTIONS (3)
  - Pulmonary arterial hypertension [Not Recovered/Not Resolved]
  - Pulmonary veno-occlusive disease [Recovering/Resolving]
  - Dyspnoea [Recovering/Resolving]

NARRATIVE: CASE EVENT DATE: 20231101
